FAERS Safety Report 9320154 (Version 4)
Quarter: 2013Q3

REPORT INFORMATION
  Report Type: Spontaneous
  Country: US (occurrence: US)
  Receive Date: 20130530
  Receipt Date: 20130813
  Transmission Date: 20140515
  Serious: Yes (Death, Hospitalization, Other)
  Sender: FDA-Public Use
  Company Number: US-JNJFOC-20130511637

PATIENT
  Sex: Female

DRUGS (14)
  1. ULTRACET [Suspect]
     Indication: ARTHRALGIA
     Route: 048
     Dates: start: 2000
  2. LEVAQUIN [Suspect]
     Indication: URINARY TRACT INFECTION
     Route: 065
     Dates: start: 2001
  3. LEVAQUIN [Suspect]
     Indication: URINARY TRACT INFECTION
     Route: 065
     Dates: start: 2007
  4. LEVAQUIN [Suspect]
     Indication: URINARY TRACT INFECTION
     Route: 065
     Dates: start: 2000
  5. LEVAQUIN [Suspect]
     Indication: PROPHYLAXIS
     Route: 065
     Dates: start: 2000
  6. LEVAQUIN [Suspect]
     Indication: PROPHYLAXIS
     Route: 065
     Dates: start: 2007
  7. LEVAQUIN [Suspect]
     Indication: PROPHYLAXIS
     Route: 065
     Dates: start: 2001
  8. LEVAQUIN [Suspect]
     Indication: DIVERTICULITIS
     Route: 065
     Dates: start: 2000
  9. LEVAQUIN [Suspect]
     Indication: DIVERTICULITIS
     Route: 065
     Dates: start: 2001
  10. LEVAQUIN [Suspect]
     Indication: DIVERTICULITIS
     Route: 065
     Dates: start: 2007
  11. TYLENOL WITH CODEINE [Suspect]
     Indication: PAIN
     Route: 048
     Dates: start: 2007
  12. CIPRO [Suspect]
     Indication: URINARY TRACT INFECTION
     Route: 048
     Dates: start: 2010
  13. CARDURA [Concomitant]
     Indication: BLOOD PRESSURE
     Dosage: 1-2 MG DAILY
     Route: 048
     Dates: start: 2000
  14. AXOTAL [Concomitant]
     Indication: NECK PAIN
     Dosage: 1-2 MG
     Route: 048

REACTIONS (28)
  - Dementia [Fatal]
  - Delusion [Unknown]
  - Hallucination [Unknown]
  - Intestinal haemorrhage [Unknown]
  - Bedridden [Unknown]
  - Dysuria [Unknown]
  - Agitation [Unknown]
  - Panic attack [Unknown]
  - Anxiety [Unknown]
  - Ear haemorrhage [Unknown]
  - Thinking abnormal [Unknown]
  - Body height decreased [Unknown]
  - Constipation [Unknown]
  - Malaise [Unknown]
  - Paraesthesia [Unknown]
  - Deafness [Unknown]
  - Haemorrhoidal haemorrhage [Unknown]
  - Skeletal injury [Unknown]
  - Drug ineffective [Unknown]
  - Pain [Unknown]
  - Cerumen impaction [Unknown]
  - Urinary tract infection [Unknown]
  - Nausea [Unknown]
  - Fatigue [Unknown]
  - Muscular weakness [Unknown]
  - Fall [Unknown]
  - Gait disturbance [Unknown]
  - Weight decreased [Unknown]
